FAERS Safety Report 4342357-6 (Version None)
Quarter: 2004Q2

REPORT INFORMATION
  Report Type: 
  Country: None (occurrence: None)
  Receive Date: 20040416
  Receipt Date: 20040405
  Transmission Date: 20050107
  Serious: Yes (Other)
  Sender: FDA-Public Use
  Company Number: 2004018051

PATIENT
  Sex: Female

DRUGS (2)
  1. DILATIN SUSPENSION (PHENYTOIN SODIUM) [Suspect]
     Indication: CONVULSION
  2. NEURONTIN [Suspect]
     Indication: CONVULSION

REACTIONS (3)
  - PANCREAS TRANSPLANT [None]
  - RENAL TRANSPLANT [None]
  - UNINTENDED PREGNANCY [None]
